FAERS Safety Report 22637917 (Version 1)
Quarter: 2023Q2

REPORT INFORMATION
  Report Type: Spontaneous
  Country: US (occurrence: None)
  Receive Date: 20230622
  Receipt Date: 20230622
  Transmission Date: 20230721
  Serious: No
  Sender: FDA-Public Use
  Company Number: None

PATIENT
  Sex: Female

DRUGS (16)
  1. VERZENIO [Suspect]
     Active Substance: ABEMACICLIB
     Indication: Breast cancer female
     Dosage: FREQUENCY : TWICE A DAY;?
     Route: 048
  2. CARAFATE [Concomitant]
     Active Substance: SUCRALFATE
  3. DOCUSATE [Concomitant]
     Active Substance: DOCUSATE
  4. FOLIC ACID [Concomitant]
     Active Substance: FOLIC ACID
  5. LETROZOLE [Concomitant]
     Active Substance: LETROZOLE
  6. LIDODERM [Concomitant]
     Active Substance: LIDOCAINE
  7. MEGESTROL [Concomitant]
  8. NARCAN [Concomitant]
  9. ZOFRAN [Concomitant]
  10. OXYCODONE [Concomitant]
  11. PANTOPRAZOLE [Concomitant]
     Active Substance: PANTOPRAZOLE
  12. PROCHLORPERAZINE [Concomitant]
     Active Substance: PROCHLORPERAZINE
  13. TRAMADOL [Concomitant]
  14. TRAZODONE [Concomitant]
     Active Substance: TRAZODONE HYDROCHLORIDE
  15. VIT B-12 [Concomitant]
  16. VITAMIN D3 [Concomitant]
     Active Substance: CHOLECALCIFEROL

REACTIONS (1)
  - Hospice care [None]
